FAERS Safety Report 5987567-7 (Version None)
Quarter: 2008Q4

REPORT INFORMATION
  Report Type: 
  Country: None (occurrence: None)
  Receive Date: 20081209
  Receipt Date: 20081128
  Transmission Date: 20090506
  Serious: Yes (Other)
  Sender: FDA-Public Use
  Company Number: CA-ALLERGAN-0815218US

PATIENT
  Sex: Female
  Weight: 61.224 kg

DRUGS (2)
  1. BOTOX COSMETIC [Suspect]
     Indication: SKIN WRINKLING
     Dosage: 60 UNITS, SINGLE
     Route: 030
     Dates: start: 20081105, end: 20081105
  2. BOTOX COSMETIC [Suspect]
     Dosage: 5 UNITS, SINGLE
     Route: 030
     Dates: start: 20081124, end: 20081124

REACTIONS (9)
  - DIPLOPIA [None]
  - DISORIENTATION [None]
  - DIZZINESS [None]
  - FACIAL PARESIS [None]
  - FEELING ABNORMAL [None]
  - LID LAG [None]
  - NAUSEA [None]
  - SKIN DISORDER [None]
  - WRONG TECHNIQUE IN DRUG USAGE PROCESS [None]
